FAERS Safety Report 5951608-3 (Version None)
Quarter: 2008Q4

REPORT INFORMATION
  Report Type: 
  Country: None (occurrence: None)
  Receive Date: 20081113
  Receipt Date: 20081106
  Transmission Date: 20090506
  Serious: Yes (Other)
  Sender: FDA-Public Use
  Company Number: PHHY2008BR27519

PATIENT
  Age: 52 Year
  Sex: Female

DRUGS (1)
  1. TRILEPTAL [Suspect]
     Indication: CONVULSION
     Dosage: 300 MG, 1/2 TABLET EVERY 12 HRS.
     Dates: start: 20080601

REACTIONS (4)
  - COLD SWEAT [None]
  - CONFUSIONAL STATE [None]
  - SYNCOPE [None]
  - VERTIGO [None]
